FAERS Safety Report 7447764-0 (Version None)
Quarter: 2011Q2

REPORT INFORMATION
  Report Type: 
  Country: None (occurrence: None)
  Receive Date: 20110429
  Receipt Date: 20100820
  Transmission Date: 20111010
  Serious: Yes (Other)
  Sender: FDA-Public Use
  Company Number: US-ASTRAZENECA-2010SE39335

PATIENT
  Sex: Male

DRUGS (1)
  1. NEXIUM [Suspect]
     Route: 048

REACTIONS (6)
  - ANAPHYLACTIC REACTION [None]
  - DYSPEPSIA [None]
  - DRUG DOSE OMISSION [None]
  - PYREXIA [None]
  - ACCIDENT [None]
  - ARTHROPOD BITE [None]
